FAERS Safety Report 24958678 (Version 1)
Quarter: 2025Q1

REPORT INFORMATION
  Report Type: Spontaneous
  Country: US (occurrence: US)
  Receive Date: 20250212
  Receipt Date: 20250212
  Transmission Date: 20250408
  Serious: No
  Sender: AJANTA PHARMA USA INC
  Company Number: US-AJANTA-2025AJA00009

PATIENT
  Age: 67 Year
  Sex: Female

DRUGS (3)
  1. SILDENAFIL [Suspect]
     Active Substance: SILDENAFIL
     Indication: Product used for unknown indication
     Route: 048
     Dates: start: 202411
  2. SILDENAFIL [Suspect]
     Active Substance: SILDENAFIL
     Route: 048
     Dates: start: 202412
  3. SILDENAFIL [Suspect]
     Active Substance: SILDENAFIL
     Route: 048
     Dates: start: 202501

REACTIONS (3)
  - Drug ineffective [Unknown]
  - Product colour issue [Unknown]
  - Product use issue [Unknown]

NARRATIVE: CASE EVENT DATE: 20241101
